FAERS Safety Report 5903871-2 (Version None)
Quarter: 2008Q3

REPORT INFORMATION
  Report Type: 
  Country: None (occurrence: None)
  Receive Date: 20080919
  Receipt Date: 20080604
  Transmission Date: 20090109
  Serious: No
  Sender: FDA-Public Use
  Company Number: US-WYE-H04379808

PATIENT
  Age: 37 Year
  Sex: Female

DRUGS (4)
  1. PRISTIQ [Suspect]
     Indication: ANXIETY
     Dosage: 100 MG 1X PER 1 DAY, ORAL; 50 MG 1X PER 1 DAY;
     Route: 048
     Dates: start: 20080501, end: 20080602
  2. PRISTIQ [Suspect]
     Indication: DEPRESSION
     Dosage: 100 MG 1X PER 1 DAY, ORAL; 50 MG 1X PER 1 DAY;
     Route: 048
     Dates: start: 20080501, end: 20080602
  3. PRISTIQ [Suspect]
     Indication: ANXIETY
     Dosage: 100 MG 1X PER 1 DAY, ORAL; 50 MG 1X PER 1 DAY;
     Route: 048
     Dates: start: 20080603
  4. PRISTIQ [Suspect]
     Indication: DEPRESSION
     Dosage: 100 MG 1X PER 1 DAY, ORAL; 50 MG 1X PER 1 DAY;
     Route: 048
     Dates: start: 20080603

REACTIONS (1)
  - ABDOMINAL PAIN UPPER [None]
